FAERS Safety Report 13766281 (Version 1)
Quarter: 2017Q3

REPORT INFORMATION
  Report Type: Spontaneous
  Country: US (occurrence: US)
  Receive Date: 20170718
  Receipt Date: 20170718
  Transmission Date: 20171127
  Serious: Yes (Death)
  Sender: FDA-Public Use
  Company Number: None

PATIENT
  Age: 74 Year
  Sex: Male

DRUGS (8)
  1. DOXYCYCL [Concomitant]
  2. ATORVASTATIN [Concomitant]
     Active Substance: ATORVASTATIN
  3. CARVEDILOL. [Concomitant]
     Active Substance: CARVEDILOL
  4. ASPIRIN. [Concomitant]
     Active Substance: ASPIRIN
  5. CAPECITABINE 500MG TAB [Suspect]
     Active Substance: CAPECITABINE
     Indication: COLON CANCER
     Route: 048
     Dates: start: 201702
  6. LISINOPRIL. [Concomitant]
     Active Substance: LISINOPRIL
  7. TAMSULOSIN [Concomitant]
     Active Substance: TAMSULOSIN
  8. ALLEGRA [Concomitant]
     Active Substance: FEXOFENADINE HYDROCHLORIDE

REACTIONS (1)
  - Death [None]

NARRATIVE: CASE EVENT DATE: 20170613
